FAERS Safety Report 11593733 (Version 1)
Quarter: 2015Q4

REPORT INFORMATION
  Report Type: Spontaneous
  Country: US (occurrence: US)
  Receive Date: 20151005
  Receipt Date: 20151005
  Transmission Date: 20160304
  Serious: No
  Sender: FDA-Public Use
  Company Number: US-GLAXOSMITHKLINE-US2015GSK118370

PATIENT
  Sex: Female
  Weight: 73 kg

DRUGS (5)
  1. ATORVASTATIN [Concomitant]
     Active Substance: ATORVASTATIN
  2. XANAX [Concomitant]
     Active Substance: ALPRAZOLAM
  3. PAXIL [Concomitant]
     Active Substance: PAROXETINE HYDROCHLORIDE
  4. IMITREX [Suspect]
     Active Substance: SUMATRIPTAN\SUMATRIPTAN SUCCINATE
     Indication: MIGRAINE
     Dosage: 50 MG, BID
     Route: 048
     Dates: start: 201506
  5. FIORICET [Suspect]
     Active Substance: ACETAMINOPHEN\BUTALBITAL\CAFFEINE
     Indication: MIGRAINE
     Dosage: UNK
     Route: 048
     Dates: start: 201506

REACTIONS (3)
  - Drug ineffective [Not Recovered/Not Resolved]
  - Medication overuse headache [Not Recovered/Not Resolved]
  - Headache [Not Recovered/Not Resolved]
